FAERS Safety Report 12545147 (Version 4)
Quarter: 2016Q3

REPORT INFORMATION
  Report Type: Spontaneous
  Country: US (occurrence: US)
  Receive Date: 20160711
  Receipt Date: 20160727
  Transmission Date: 20161109
  Serious: Yes (Other)
  Sender: FDA-Public Use
  Company Number: US-BAYER-2016-134769

PATIENT
  Age: 68 Year
  Sex: Female
  Weight: 81.63 kg

DRUGS (18)
  1. INSULIN ASPART [Concomitant]
     Active Substance: INSULIN ASPART
     Dosage: 1 TO 6 UNIT (S), QID AT BED TIME
  2. MICONAZOLE. [Concomitant]
     Active Substance: MICONAZOLE
     Dosage: 1 DF, TID
     Route: 061
  3. NYSTATIN. [Concomitant]
     Active Substance: NYSTATIN
     Dosage: 1 DF, TID
     Route: 061
  4. AMLACTIN [Concomitant]
     Active Substance: AMMONIUM LACTATE
     Dosage: 1 DF, BID
     Route: 061
  5. INSULIN ASPART [Concomitant]
     Active Substance: INSULIN ASPART
     Dosage: 20 UNIT (S), TID MEALS
     Route: 058
     Dates: start: 20160711
  6. DOCUSATE [Concomitant]
     Active Substance: DOCUSATE
     Dosage: 1 DF, QD
     Route: 048
     Dates: start: 20160710
  7. GADAVIST [Suspect]
     Active Substance: GADOBUTROL
     Indication: ARTERIOGRAM CAROTID
     Dosage: 10 ML, ONCE
     Route: 042
     Dates: start: 20160707, end: 20160707
  8. GADAVIST [Suspect]
     Active Substance: GADOBUTROL
     Indication: CAROTID ARTERY STENOSIS
  9. ASPIRIN. [Concomitant]
     Active Substance: ASPIRIN
     Dosage: 1 DF, QD
     Dates: start: 20160710
  10. MECLIZINE [Concomitant]
     Active Substance: MECLIZINE HYDROCHLORIDE
     Indication: DIZZINESS
     Dosage: 1 DF, QD
     Route: 048
     Dates: start: 20160703
  11. OMEGA 3 FISH OIL [Concomitant]
     Active Substance: FISH OIL\OMEGA-3 FATTY ACIDS
     Dosage: 1 DF, BID
     Dates: start: 20160703
  12. METOPROLOL. [Concomitant]
     Active Substance: METOPROLOL
     Dosage: 1 DF, BID
     Dates: start: 20140820
  13. POTASSIUM CHLORIDE. [Concomitant]
     Active Substance: POTASSIUM CHLORIDE
     Dosage: 1 DF, QD
     Route: 048
     Dates: start: 20160703
  14. ERGOCALCIFEROL. [Concomitant]
     Active Substance: ERGOCALCIFEROL
     Dosage: 1 DF, QD
     Dates: start: 20160703
  15. ATORVASTATIN [Concomitant]
     Active Substance: ATORVASTATIN
     Dosage: 1 DF, HS
     Route: 048
     Dates: start: 20160710
  16. FUROSEMIDE. [Concomitant]
     Active Substance: FUROSEMIDE
     Dosage: 1 DF, QD
     Route: 048
     Dates: start: 20160703
  17. DIGOXIN. [Concomitant]
     Active Substance: DIGOXIN
     Dosage: 1 DF, QD
     Route: 048
     Dates: start: 20141118
  18. INSULIN DETEMIR [Concomitant]
     Active Substance: INSULIN DETEMIR
     Dosage: 57 UNIT (S), HS
     Route: 058
     Dates: start: 20160710

REACTIONS (4)
  - Unresponsive to stimuli [Recovered/Resolved]
  - Erythema [Recovered/Resolved]
  - Anaphylactic shock [Recovered/Resolved]
  - Oxygen saturation decreased [Recovered/Resolved]

NARRATIVE: CASE EVENT DATE: 20160707
